FAERS Safety Report 21785852 (Version 1)
Quarter: 2022Q4

REPORT INFORMATION
  Report Type: Spontaneous
  Country: US (occurrence: US)
  Receive Date: 20221227
  Receipt Date: 20221227
  Transmission Date: 20230112
  Serious: No
  Sender: FDA-Public Use
  Company Number: US-drreddys-SPO/USA/22/0158247

PATIENT
  Age: 45 Year

DRUGS (1)
  1. ZENATANE [Suspect]
     Active Substance: ISOTRETINOIN
     Indication: Product used for unknown indication

REACTIONS (11)
  - Papule [Unknown]
  - Acne pustular [Unknown]
  - Dermatitis [Unknown]
  - Dermatosis [Unknown]
  - Neoplasm [Unknown]
  - Fibrosis [Unknown]
  - Cyst [Unknown]
  - Skin abrasion [Unknown]
  - Acne [Unknown]
  - Scar [Unknown]
  - Cheilitis [Unknown]
